FAERS Safety Report 7870456-0 (Version None)
Quarter: 2011Q4

REPORT INFORMATION
  Report Type: 
  Country: None (occurrence: None)
  Receive Date: 20111029
  Receipt Date: 20110309
  Transmission Date: 20120403
  Serious: No
  Sender: FDA-Public Use
  Company Number: US-AMGEN-USASP2011013251

PATIENT
  Age: 28 Year
  Sex: Male

DRUGS (1)
  1. ENBREL [Suspect]
     Indication: ANKYLOSING SPONDYLITIS
     Dates: start: 20090101

REACTIONS (6)
  - ARTHRALGIA [None]
  - DYSURIA [None]
  - GAIT DISTURBANCE [None]
  - WHITE BLOOD CELL COUNT INCREASED [None]
  - BACK PAIN [None]
  - PYREXIA [None]
